FAERS Safety Report 5183326-6 (Version None)
Quarter: 2006Q4

REPORT INFORMATION
  Report Type: 
  Country: None (occurrence: None)
  Receive Date: 20061220
  Receipt Date: 20060106
  Transmission Date: 20070319
  Serious: No
  Sender: FDA-Public Use
  Company Number: US-GLAXOSMITHKLINE-A0588261A

PATIENT
  Age: 46 Year
  Sex: Female

DRUGS (1)
  1. NICODERM CQ [Suspect]
     Dates: start: 20060102

REACTIONS (9)
  - ANXIETY [None]
  - DISCOMFORT [None]
  - ERYTHEMA [None]
  - INSOMNIA [None]
  - LOCAL SWELLING [None]
  - PRURITUS [None]
  - PSYCHOMOTOR HYPERACTIVITY [None]
  - SKIN DISORDER [None]
  - SKIN INFLAMMATION [None]
